FAERS Safety Report 8018480-1 (Version None)
Quarter: 2012Q1

REPORT INFORMATION
  Report Type: 
  Country: None (occurrence: None)
  Receive Date: 20120103
  Receipt Date: 20111228
  Transmission Date: 20120608
  Serious: Yes (Life-Threatening, Hospitalization)
  Sender: FDA-Public Use
  Company Number: JP-ASTELLAS-2011JP006765

PATIENT
  Sex: Male

DRUGS (8)
  1. SULFAMETHOXAZOLE AND TRIMETHOPRIM [Concomitant]
     Dosage: 100 MG, UID/QD
     Route: 048
     Dates: start: 20110301
  2. PREDNISOLONE [Concomitant]
     Indication: SYSTEMIC LUPUS ERYTHEMATOSUS
     Dosage: 10 MG, UNKNOWN/D
     Route: 048
     Dates: start: 20110301
  3. CONIEL [Concomitant]
     Indication: HYPERTENSION
     Dosage: 4 MG, UID/QD
     Route: 048
     Dates: start: 20110301
  4. PROGRAF [Suspect]
     Indication: LUPUS NEPHRITIS
     Dosage: 3 MG, UID/QD
     Route: 048
     Dates: start: 20110427, end: 20110919
  5. PROGRAF [Suspect]
     Indication: SYSTEMIC LUPUS ERYTHEMATOSUS
  6. PREDNISOLONE [Concomitant]
     Indication: LUPUS NEPHRITIS
     Dosage: 7.5 MG, UID/QD
     Route: 048
     Dates: start: 20110331
  7. RABEPRAZOLE SODIUM [Concomitant]
     Dosage: 10 MG, UID/QD
     Route: 048
     Dates: start: 20110301
  8. ISONIAZID [Concomitant]
     Dosage: UNK
     Route: 048
     Dates: start: 20110101

REACTIONS (3)
  - CARDIOMYOPATHY [None]
  - PERICARDIAL EFFUSION [None]
  - CARDIAC TAMPONADE [None]
